FAERS Safety Report 5083080-2 (Version None)
Quarter: 2006Q3

REPORT INFORMATION
  Report Type: 
  Country: None (occurrence: None)
  Receive Date: 20060814
  Receipt Date: 20060803
  Transmission Date: 20061208
  Serious: Yes (Hospitalization)
  Sender: FDA-Public Use
  Company Number: 2006096258

PATIENT
  Age: 85 Year
  Sex: Male

DRUGS (4)
  1. FRAGMIN [Suspect]
     Indication: DEEP VEIN THROMBOSIS
     Dosage: 1750 I.U. (1750 I.U., 1 IN 1 D),SUBCUTANEOUS
     Route: 058
     Dates: start: 20060602, end: 20060607
  2. WARFARIN SODIUM [Suspect]
     Indication: DEEP VEIN THROMBOSIS
     Dosage: ORAL
     Route: 048
     Dates: start: 20060605, end: 20060607
  3. ENALAPRIL [Concomitant]
  4. LITHIONIT (LITHIUM SULFATE) [Concomitant]

REACTIONS (4)
  - LEG AMPUTATION [None]
  - MUSCLE DISORDER [None]
  - SKIN NECROSIS [None]
  - SOFT TISSUE HAEMORRHAGE [None]
